FAERS Safety Report 18373874 (Version 2)
Quarter: 2020Q4

REPORT INFORMATION
  Report Type: Spontaneous
  Country: NO (occurrence: NO)
  Receive Date: 20201012
  Receipt Date: 20201104
  Transmission Date: 20210114
  Serious: Yes (Other)
  Sender: FDA-Public Use
  Company Number: NO-MYLANLABS-2020M1085867

PATIENT
  Sex: Male
  Weight: 63 kg

DRUGS (4)
  1. BACLOFEN MYLAN [Suspect]
     Active Substance: BACLOFEN
     Dosage: 5 MILLIGRAM, TID
     Dates: start: 2020
  2. FURIX [Concomitant]
     Dosage: 40 MILLIGRAM, QD
  3. BACLOFEN MYLAN [Suspect]
     Active Substance: BACLOFEN
     Indication: MUSCLE SPASMS
     Dosage: 150 MILLIGRAM (FOR 4 MONTHS)
     Dates: start: 2020
  4. BACLOFEN MYLAN [Suspect]
     Active Substance: BACLOFEN
     Dosage: 20 MILLIGRAM, TID
     Dates: start: 20200425, end: 202009

REACTIONS (15)
  - Overdose [Unknown]
  - Mental disorder [Recovered/Resolved]
  - Disturbance in attention [Recovered/Resolved]
  - Fatigue [Recovering/Resolving]
  - Incorrect dose administered [Unknown]
  - Pain [Not Recovered/Not Resolved]
  - Paranoia [Recovered/Resolved]
  - Memory impairment [Recovered/Resolved]
  - Confusional state [Recovered/Resolved]
  - Erectile dysfunction [Recovering/Resolving]
  - Hallucination [Recovered/Resolved]
  - Pruritus [Recovering/Resolving]
  - Paraesthesia [Recovering/Resolving]
  - Balance disorder [Recovering/Resolving]
  - Nausea [Not Recovered/Not Resolved]

NARRATIVE: CASE EVENT DATE: 2020
